FAERS Safety Report 6812843-5 (Version None)
Quarter: 2010Q3

REPORT INFORMATION
  Report Type: 
  Country: None (occurrence: None)
  Receive Date: 20100701
  Receipt Date: 20100621
  Transmission Date: 20110219
  Serious: Yes (Death, Other)
  Sender: FDA-Public Use
  Company Number: BR-ELI_LILLY_AND_COMPANY-BR201006006231

PATIENT

DRUGS (3)
  1. CYMBALTA [Suspect]
     Indication: GENERALISED ANXIETY DISORDER
     Dosage: 60 MG, DAILY (1/D)
     Route: 064
     Dates: start: 20100101
  2. TOPIRAMATE [Concomitant]
     Dosage: 50 MG, DAILY (1/D)
     Route: 064
     Dates: start: 20100501
  3. PROGESTERONE [Concomitant]
     Dosage: UNK, UNK
     Route: 064
     Dates: start: 20100616

REACTIONS (4)
  - DRUG EXPOSURE DURING PREGNANCY [None]
  - FOETAL HEART RATE ABNORMAL [None]
  - INTRA-UTERINE DEATH [None]
  - SMALL FOR DATES BABY [None]
